FAERS Safety Report 9107897 (Version 1)
Quarter: 2013Q1

REPORT INFORMATION
  Report Type: Spontaneous
  Country: CO (occurrence: CO)
  Receive Date: 20130221
  Receipt Date: 20130221
  Transmission Date: 20140127
  Serious: Yes (Other)
  Sender: FDA-Public Use
  Company Number: CO-009507513-1207COL007673

PATIENT
  Sex: Female

DRUGS (3)
  1. PEG-INTRON [Suspect]
     Dosage: UNK
     Dates: start: 20120611
  2. RIBAVIRIN [Suspect]
     Dosage: UNK
     Route: 048
  3. VICTRELIS [Suspect]
     Dosage: UNK UNK, QD
     Route: 048
     Dates: start: 20120709

REACTIONS (3)
  - Leukopenia [Unknown]
  - Fatigue [Unknown]
  - Headache [Unknown]
